FAERS Safety Report 5195269-2 (Version None)
Quarter: 2006Q4

REPORT INFORMATION
  Report Type: 
  Country: None (occurrence: None)
  Receive Date: 20061229
  Receipt Date: 20061118
  Transmission Date: 20070319
  Serious: Yes (Other)
  Sender: FDA-Public Use
  Company Number: DE-PFIZER INC-2006143594

PATIENT
  Sex: Male
  Weight: 64 kg

DRUGS (1)
  1. ZELDOX (CAPSULES) [Suspect]
     Indication: DELUSIONAL DISORDER, PERSECUTORY TYPE
     Route: 048

REACTIONS (1)
  - BLOOD BILIRUBIN INCREASED [None]
